FAERS Safety Report 15112806 (Version 4)
Quarter: 2018Q4

REPORT INFORMATION
  Report Type: Spontaneous
  Country: US (occurrence: US)
  Receive Date: 20180705
  Receipt Date: 20181015
  Transmission Date: 20190204
  Serious: No
  Sender: FDA-Public Use
  Company Number: US-AMGEN-USASP2018089165

PATIENT
  Age: 55 Year
  Sex: Male

DRUGS (6)
  1. EPOGEN [Suspect]
     Active Substance: ERYTHROPOIETIN
     Dosage: 30000 UNIT, 2 TIMES/WK
     Route: 065
     Dates: start: 201803
  2. EPOGEN [Suspect]
     Active Substance: ERYTHROPOIETIN
     Dosage: 60000 UNIT, UNK
     Route: 065
     Dates: start: 2018
  3. EPOGEN [Suspect]
     Active Substance: ERYTHROPOIETIN
     Indication: HAEMOGLOBIN DECREASED
     Dosage: UNK (4000 TO 7000 UNITS)
     Route: 065
  4. EPOGEN [Suspect]
     Active Substance: ERYTHROPOIETIN
     Dosage: 40000 UNIT, UNK
     Route: 065
  5. EPOGEN [Suspect]
     Active Substance: ERYTHROPOIETIN
     Dosage: 12000 UNIT, UNK
     Route: 065
  6. EPOGEN [Suspect]
     Active Substance: ERYTHROPOIETIN
     Dosage: 60000 UNIT, QWK (SPLIT UP AS 30,000 UNITS TWICE A WEEK)
     Route: 065

REACTIONS (1)
  - Drug effect decreased [Unknown]
